FAERS Safety Report 4926353-3 (Version None)
Quarter: 2006Q1

REPORT INFORMATION
  Report Type: 
  Country: None (occurrence: None)
  Receive Date: 20060228
  Receipt Date: 20051103
  Transmission Date: 20060701
  Serious: No
  Sender: FDA-Public Use
  Company Number: US-GLAXOSMITHKLINE-A0580813A

PATIENT
  Age: 53 Year
  Sex: Female

DRUGS (3)
  1. LAMICTAL [Suspect]
     Indication: BIPOLAR DISORDER
     Dosage: 25MG PER DAY
     Route: 048
     Dates: start: 20051001, end: 20051001
  2. TOPAMAX [Concomitant]
  3. WELLBUTRIN [Concomitant]

REACTIONS (7)
  - EAR PAIN [None]
  - ERYTHEMA [None]
  - EYE PAIN [None]
  - EYE SWELLING [None]
  - HEADACHE [None]
  - LACRIMATION INCREASED [None]
  - NECK PAIN [None]
